FAERS Safety Report 4728272-4 (Version None)
Quarter: 2005Q3

REPORT INFORMATION
  Report Type: 
  Country: None (occurrence: None)
  Receive Date: 20050729
  Receipt Date: 20050719
  Transmission Date: 20060218
  Serious: Yes (Hospitalization)
  Sender: FDA-Public Use
  Company Number: 2005UW10779

PATIENT
  Age: 31 Year
  Sex: Male
  Weight: 104.3 kg

DRUGS (5)
  1. CRESTOR [Suspect]
     Indication: BLOOD CHOLESTEROL INCREASED
     Route: 048
  2. HMG INJECTIONS [Suspect]
     Indication: INFERTILITY
  3. NORVASC [Concomitant]
     Indication: HYPERTENSION
  4. HYDROCHLOROTHIAZIDE [Concomitant]
     Indication: HYPERTENSION
  5. REMERON [Concomitant]
     Indication: SLEEP DISORDER

REACTIONS (6)
  - CHROMATURIA [None]
  - DEHYDRATION [None]
  - HEAT EXHAUSTION [None]
  - NAUSEA [None]
  - RED BLOOD CELLS URINE [None]
  - RHABDOMYOLYSIS [None]
